FAERS Safety Report 5353541-7 (Version None)
Quarter: 2007Q2

REPORT INFORMATION
  Report Type: 
  Country: None (occurrence: None)
  Receive Date: 20070608
  Receipt Date: 20070523
  Transmission Date: 20071010
  Serious: Yes (Hospitalization)
  Sender: FDA-Public Use
  Company Number: 2007BI002542

PATIENT
  Age: 34 Year
  Sex: Female
  Weight: 32.2054 kg

DRUGS (2)
  1. AVONEX [Suspect]
     Indication: MULTIPLE SCLEROSIS
     Dosage: 30 UG;QW; IM
     Route: 030
     Dates: start: 20050101
  2. ACETAMINOPHEN [Concomitant]

REACTIONS (3)
  - FALLOPIAN TUBE CYST [None]
  - OVARIAN CYSTECTOMY [None]
  - PAIN [None]
